FAERS Safety Report 12091493 (Version 1)
Quarter: 2016Q1

REPORT INFORMATION
  Report Type: Spontaneous
  Country: NO (occurrence: NO)
  Receive Date: 20160218
  Receipt Date: 20160218
  Transmission Date: 20160526
  Serious: Yes (Death, Other)
  Sender: FDA-Public Use
  Company Number: NO-PFIZER INC-2016093624

PATIENT
  Age: 60 Year
  Sex: Male

DRUGS (11)
  1. LANSOPRAZOLE. [Concomitant]
     Active Substance: LANSOPRAZOLE
     Dosage: 30 MG, 1X/DAY
     Route: 048
  2. LACTULOSE. [Concomitant]
     Active Substance: LACTULOSE
     Dosage: 15 ML MORNING AND EVENING AS NECCESSARY
     Route: 048
  3. LIPITOR [Concomitant]
     Active Substance: ATORVASTATIN CALCIUM
     Dosage: 80 MG, 1X/DAY
     Route: 048
  4. PANODIL [Concomitant]
     Active Substance: ACETAMINOPHEN
     Dosage: 1 G, 3X/DAY
     Route: 048
  5. ALBYL-E [Concomitant]
     Active Substance: ASPIRIN\MAGNESIUM OXIDE
     Dosage: 75 MG, 1X/DAY
     Route: 048
  6. EFEXOR DEPOT [Suspect]
     Active Substance: VENLAFAXINE HYDROCHLORIDE
     Dosage: 225 MG, 1X/DAY
     Route: 048
  7. SPIRIX [Concomitant]
     Active Substance: SPIRONOLACTONE
     Dosage: 25 MG, 2X/DAY
     Route: 048
  8. KAJOS [Concomitant]
     Active Substance: POTASSIUM CITRATE
     Dosage: 30 ML, 2X/DAY
     Route: 048
  9. CARVEDILOL. [Concomitant]
     Active Substance: CARVEDILOL
     Dosage: 12.5 MG, 1X/DAY
     Route: 048
  10. NYCOPLUS B-TOTAL [Concomitant]
     Dosage: UNK, 3X/DAY
     Route: 048
  11. COZAAR COMP [Concomitant]
     Active Substance: HYDROCHLOROTHIAZIDE\LOSARTAN POTASSIUM
     Dosage: 50 MG LOSARTAN, 12.5 MG HYDROCHLOROTHIAZIDE, 1X/DAY,
     Route: 048

REACTIONS (4)
  - Ventricular fibrillation [Fatal]
  - Myocardial infarction [Fatal]
  - Tonic convulsion [Recovered/Resolved]
  - Drug level above therapeutic [Not Recovered/Not Resolved]

NARRATIVE: CASE EVENT DATE: 20160112
